FAERS Safety Report 7023714-6 (Version None)
Quarter: 2010Q4

REPORT INFORMATION
  Report Type: 
  Country: None (occurrence: None)
  Receive Date: 20101001
  Receipt Date: 20100924
  Transmission Date: 20110411
  Serious: Yes (Hospitalization)
  Sender: FDA-Public Use
  Company Number: FR-KINGPHARMUSA00001-K201001210

PATIENT
  Age: 72 Year
  Sex: Female

DRUGS (4)
  1. ALTACE [Suspect]
     Dosage: UNK
     Route: 048
     Dates: end: 20100720
  2. METFORMIN [Suspect]
     Dosage: UNK
     Route: 048
     Dates: end: 20100720
  3. ISOPTIN [Suspect]
     Dosage: UNK
     Route: 048
     Dates: end: 20100720
  4. INSULATARD [Suspect]
     Dosage: UNK
     Route: 058
     Dates: end: 20100720

REACTIONS (9)
  - ALTERED STATE OF CONSCIOUSNESS [None]
  - ANAEMIA MACROCYTIC [None]
  - BLOOD PRESSURE DECREASED [None]
  - HYPOGLYCAEMIA [None]
  - HYPOPHAGIA [None]
  - LACTIC ACIDOSIS [None]
  - OVERDOSE [None]
  - RENAL FAILURE ACUTE [None]
  - VITAMIN B12 DEFICIENCY [None]
